FAERS Safety Report 4624974-9 (Version None)
Quarter: 2005Q2

REPORT INFORMATION
  Report Type: 
  Country: None (occurrence: None)
  Receive Date: 20050401
  Receipt Date: 20050322
  Transmission Date: 20051028
  Serious: Yes (Death)
  Sender: FDA-Public Use
  Company Number: BE-JNJFOC-20040807970

PATIENT
  Age: 68 Year
  Sex: Female

DRUGS (1)
  1. PROPULSID [Suspect]
     Indication: DIABETIC GASTROPARESIS
     Route: 049
     Dates: start: 20031218

REACTIONS (3)
  - ANOREXIA [None]
  - CONDITION AGGRAVATED [None]
  - DEATH [None]
